FAERS Safety Report 15223650 (Version 1)
Quarter: 2018Q3

REPORT INFORMATION
  Report Type: Spontaneous
  Country: US (occurrence: US)
  Receive Date: 20180705
  Receipt Date: 20180705
  Transmission Date: 20181010
  Serious: Yes (Other)
  Sender: FDA-Public Use
  Company Number: None

PATIENT
  Age: 23 Year
  Sex: Male
  Weight: 97.2 kg

DRUGS (1)
  1. VIVITROL [Suspect]
     Active Substance: NALTREXONE
     Indication: DRUG DEPENDENCE
     Route: 030
     Dates: start: 20180703, end: 20180703

REACTIONS (6)
  - Dizziness [None]
  - Laceration [None]
  - Head injury [None]
  - Fall [None]
  - Loss of consciousness [None]
  - Hyperhidrosis [None]

NARRATIVE: CASE EVENT DATE: 20180703
